APPROVED DRUG PRODUCT: FLUCONAZOLE IN SODIUM CHLORIDE 0.9% IN PLASTIC CONTAINER
Active Ingredient: FLUCONAZOLE
Strength: 400MG/200ML (2MG/ML)
Dosage Form/Route: INJECTABLE;INJECTION
Application: A078698 | Product #002 | TE Code: AP
Applicant: HIKMA FARMACEUTICA (PORTUGAL) SA
Approved: Jan 30, 2012 | RLD: No | RS: No | Type: RX